FAERS Safety Report 4687574-0 (Version None)
Quarter: 2005Q2

REPORT INFORMATION
  Report Type: 
  Country: None (occurrence: None)
  Receive Date: 20050610
  Receipt Date: 20050317
  Transmission Date: 20051028
  Serious: Yes (Life-Threatening)
  Sender: FDA-Public Use
  Company Number: JP-BRISTOL-MYERS SQUIBB COMPANY-12902284

PATIENT
  Age: 30 Year
  Sex: Male

DRUGS (3)
  1. BRIPLATIN [Suspect]
     Indication: TESTIS CANCER
     Route: 042
     Dates: start: 20031112, end: 20040201
  2. LASTET [Suspect]
     Indication: TESTIS CANCER
     Route: 042
     Dates: start: 20031112, end: 20040201
  3. BLEOMYCIN [Suspect]
     Indication: TESTIS CANCER
     Route: 042
     Dates: start: 20031112, end: 20040128

REACTIONS (5)
  - ACUTE MYOCARDIAL INFARCTION [None]
  - CORONARY ARTERY OCCLUSION [None]
  - DEHYDRATION [None]
  - DIARRHOEA [None]
  - HYPOMAGNESAEMIA [None]
